FAERS Safety Report 11540561 (Version 1)
Quarter: 2015Q3

REPORT INFORMATION
  Report Type: Spontaneous
  Country: US (occurrence: US)
  Receive Date: 20150923
  Receipt Date: 20150923
  Transmission Date: 20151125
  Serious: No
  Sender: FDA-Public Use
  Company Number: US-BEH-2015049778

PATIENT
  Sex: Female
  Weight: 54 kg

DRUGS (21)
  1. DIPHENHYDRAMINE. [Concomitant]
     Active Substance: DIPHENHYDRAMINE
  2. BIOTIN [Concomitant]
     Active Substance: BIOTIN
  3. HYDROXYCHLOROQUINE [Concomitant]
     Active Substance: HYDROXYCHLOROQUINE
  4. CORDRAN [Concomitant]
     Active Substance: FLURANDRENOLIDE
  5. PRIVIGEN [Suspect]
     Active Substance: HUMAN IMMUNOGLOBULIN G
     Dosage: 20GM; AS DIRECTED; DOSING PERIOD 13-MAR-2015- 09-APR-2015
     Route: 042
  6. PRIVIGEN [Suspect]
     Active Substance: HUMAN IMMUNOGLOBULIN G
     Indication: DERMATOMYOSITIS
     Dosage: LAST INFUSION 19-/ 20-DEC-2014
     Route: 042
  7. PROTOPIC [Concomitant]
     Active Substance: TACROLIMUS
  8. CALCIUM 600 + D3 [Concomitant]
  9. VITAMIN D [Concomitant]
     Active Substance: CHOLECALCIFEROL
  10. ONE A DAY WOMEN^S VITAMIN [Concomitant]
  11. TRIAMCINOLONE [Concomitant]
     Active Substance: TRIAMCINOLONE
  12. HYDROXYZINE [Concomitant]
     Active Substance: HYDROXYZINE\HYDROXYZINE HYDROCHLORIDE
  13. ACETAMINOPHEN. [Concomitant]
     Active Substance: ACETAMINOPHEN
  14. LIDOCAINE. [Concomitant]
     Active Substance: LIDOCAINE
  15. FLUOXETINE [Concomitant]
     Active Substance: FLUOXETINE\FLUOXETINE HYDROCHLORIDE
  16. CLINDAMYCIN PHOSPHATE. [Concomitant]
     Active Substance: CLINDAMYCIN PHOSPHATE
  17. CETIRIZINE [Concomitant]
     Active Substance: CETIRIZINE HYDROCHLORIDE
  18. HEPARIN [Concomitant]
     Active Substance: HEPARIN SODIUM
  19. SODIUM CHLORIDE. [Concomitant]
     Active Substance: SODIUM CHLORIDE
  20. EPIPEN [Concomitant]
     Active Substance: EPINEPHRINE
  21. PRIVIGEN [Suspect]
     Active Substance: HUMAN IMMUNOGLOBULIN G
     Dosage: 10 GM; AS DIRECTED; DOSING PERIOD 13-MAR-2015- 09-APR-2015
     Route: 042

REACTIONS (1)
  - Drug ineffective for unapproved indication [Unknown]
